FAERS Safety Report 21059050 (Version 5)
Quarter: 2022Q3

REPORT INFORMATION
  Report Type: Spontaneous
  Country: US (occurrence: US)
  Receive Date: 20220708
  Receipt Date: 20220901
  Transmission Date: 20221026
  Serious: Yes (Other)
  Sender: FDA-Public Use
  Company Number: US-PFIZER INC-PV202200017610

PATIENT
  Age: 48 Year
  Sex: Female

DRUGS (1)
  1. IBRANCE [Suspect]
     Active Substance: PALBOCICLIB
     Dosage: 125 MG

REACTIONS (13)
  - Lung neoplasm malignant [Recovering/Resolving]
  - Fatigue [Recovered/Resolved]
  - Dyspnoea [Unknown]
  - White blood cell count decreased [Unknown]
  - Abdominal pain upper [Recovered/Resolved]
  - Nausea [Recovered/Resolved]
  - Diarrhoea [Recovered/Resolved]
  - Full blood count decreased [Unknown]
  - Cough [Unknown]
  - Condition aggravated [Unknown]
  - Anxiety [Unknown]
  - Stomatitis [Unknown]
  - Nasal disorder [Unknown]

NARRATIVE: CASE EVENT DATE: 20220701
